FAERS Safety Report 16664865 (Version 2)
Quarter: 2021Q3

REPORT INFORMATION
  Report Type: Spontaneous
  Country: US (occurrence: US)
  Receive Date: 20190803
  Receipt Date: 20210806
  Transmission Date: 20211014
  Serious: Yes (Other)
  Sender: FDA-Public Use
  Company Number: US-ACCORD-069352

PATIENT
  Age: 66 Year
  Sex: Female
  Weight: 92.08 kg

DRUGS (12)
  1. LOPRESSOR [Concomitant]
     Active Substance: METOPROLOL TARTRATE
     Dosage: STRENGTH: 25 MG
     Dates: start: 198801
  2. MICRO K [Concomitant]
     Dosage: STRENGTH: 10 MEQ
     Dates: start: 198801
  3. ZOLOFT [Concomitant]
     Active Substance: SERTRALINE HYDROCHLORIDE
     Dosage: STRENGTH: 50 MG
     Dates: start: 198801
  4. PARAPLATIN [Suspect]
     Active Substance: CARBOPLATIN
     Indication: BREAST CANCER
     Dates: start: 20160401, end: 20160727
  5. NEURONTIN [Concomitant]
     Active Substance: GABAPENTIN
     Dosage: STRENGTH: 600 MG
     Dates: start: 198801
  6. QUINAPRIL. [Concomitant]
     Active Substance: QUINAPRIL
     Dosage: STRENGTH: 10 MG
     Dates: start: 2016
  7. LIVALO [Concomitant]
     Active Substance: PITAVASTATIN CALCIUM
     Dosage: 2 MG
     Dates: start: 201801
  8. ASA [Concomitant]
     Active Substance: ASPIRIN
     Dosage: 81 MG
     Dates: start: 198801
  9. DOCETAXEL ACCORD [Suspect]
     Active Substance: DOCETAXEL
     Indication: BREAST CANCER
     Dates: start: 20160401, end: 20160727
  10. ACETYLSALICYLIC ACID [Concomitant]
     Active Substance: ASPIRIN
     Dosage: STRENGTH: 81 MG
     Dates: start: 198801
  11. XYZAL [Concomitant]
     Active Substance: LEVOCETIRIZINE DIHYDROCHLORIDE
     Dosage: STRENGTH: 5 MG
     Dates: start: 198801
  12. AROMASIN [Concomitant]
     Active Substance: EXEMESTANE
     Dosage: STRENGTH: 25 MG
     Dates: start: 201709

REACTIONS (1)
  - Alopecia [Not Recovered/Not Resolved]

NARRATIVE: CASE EVENT DATE: 201702
